FAERS Safety Report 6143050-X (Version None)
Quarter: 2009Q2

REPORT INFORMATION
  Report Type: 
  Country: None (occurrence: None)
  Receive Date: 20090403
  Receipt Date: 20090324
  Transmission Date: 20091009
  Serious: Yes (Life-Threatening, Hospitalization)
  Sender: FDA-Public Use
  Company Number: GB-PFIZER INC-2009184628

PATIENT

DRUGS (10)
  1. DOXORUBICIN HCL [Suspect]
     Indication: BREAST CANCER
     Dosage: 110 MG, CYCLIC
     Route: 042
     Dates: start: 20090211, end: 20090211
  2. CYCLOPHOSPHAMIDE [Suspect]
     Indication: BREAST CANCER
     Dosage: 1098 MG, CYCLIC
     Route: 042
     Dates: start: 20090211, end: 20090211
  3. METOCLOPRAMIDE [Suspect]
     Indication: PREMEDICATION
     Dosage: UNK
     Dates: start: 20090304
  4. IXABEPILONE [Suspect]
     Indication: BREAST CANCER
     Dosage: 74 MG, CYCLIC
     Route: 042
     Dates: start: 20090304, end: 20090304
  5. PAROXETINE [Concomitant]
     Dosage: UNK
     Dates: start: 20070101
  6. ATENOLOL [Concomitant]
     Dosage: UNK
     Dates: start: 20081201
  7. CHLORPHENAMINE [Concomitant]
     Dosage: UNK
     Dates: start: 20090304
  8. RANITIDINE [Concomitant]
     Dosage: UNK
     Dates: start: 20090304
  9. DEXAMETHASONE [Concomitant]
     Dosage: UNK
     Dates: start: 20090304
  10. ONDANSETRON [Concomitant]
     Dosage: UNK
     Dates: start: 20090304

REACTIONS (2)
  - ANAPHYLACTIC REACTION [None]
  - PULMONARY EMBOLISM [None]
